FAERS Safety Report 6924561-3 (Version None)
Quarter: 2010Q3

REPORT INFORMATION
  Report Type: 
  Country: None (occurrence: None)
  Receive Date: 20100816
  Receipt Date: 20100805
  Transmission Date: 20110219
  Serious: Yes (Other)
  Sender: FDA-Public Use
  Company Number: US-TYCO HEALTHCARE/MALLINCKRODT-T201001753

PATIENT

DRUGS (4)
  1. OPTIRAY 350 [Suspect]
     Indication: ARTHROGRAM
     Dosage: UNK
     Route: 014
  2. SODIUM CHLORIDE [Suspect]
     Dosage: 10 ML, SINGLE
     Route: 014
  3. MAGNEVIST [Suspect]
     Indication: ARTHROGRAM
     Dosage: 1 ML, SINGLE
     Route: 014
  4. LIDOCAINE [Suspect]
     Dosage: 5 ML, SINGLE
     Route: 014

REACTIONS (5)
  - INCORRECT ROUTE OF DRUG ADMINISTRATION [None]
  - INFLAMMATION [None]
  - JOINT EFFUSION [None]
  - OFF LABEL USE [None]
  - WRONG TECHNIQUE IN DRUG USAGE PROCESS [None]
